FAERS Safety Report 4570298-8 (Version None)
Quarter: 2005Q1

REPORT INFORMATION
  Report Type: 
  Country: None (occurrence: None)
  Receive Date: 20050204
  Receipt Date: 20041223
  Transmission Date: 20050727
  Serious: Yes (Hospitalization, Other)
  Sender: FDA-Public Use
  Company Number: US-AMGEN-KDL108678

PATIENT
  Sex: Female

DRUGS (2)
  1. ENBREL [Suspect]
     Indication: RHEUMATOID ARTHRITIS
     Route: 058
     Dates: start: 20040101
  2. METHOTREXATE [Concomitant]

REACTIONS (6)
  - ABSCESS [None]
  - CARPAL TUNNEL SYNDROME [None]
  - INCISION SITE COMPLICATION [None]
  - PELVIC PAIN [None]
  - POSTOPERATIVE INFECTION [None]
  - WEIGHT DECREASED [None]
